FAERS Safety Report 12450783 (Version 1)
Quarter: 2016Q2

REPORT INFORMATION
  Report Type: Spontaneous
  Country: US (occurrence: US)
  Receive Date: 20160609
  Receipt Date: 20160609
  Transmission Date: 20160815
  Serious: No
  Sender: FDA-Public Use
  Company Number: US-PERRIGO-16US015335

PATIENT
  Age: 49 Year
  Sex: Male
  Weight: 83.9 kg

DRUGS (5)
  1. PERMETHRIN. [Suspect]
     Active Substance: PERMETHRIN
     Dosage: THIN RIBBON, QD TO AFFECTED AREAS ON TORSO
     Route: 061
     Dates: start: 20160325, end: 20160401
  2. PERMETHRIN. [Suspect]
     Active Substance: PERMETHRIN
     Dosage: 60 G, SINGLE
     Route: 061
     Dates: start: 20160304, end: 20160304
  3. PERMETHRIN. [Suspect]
     Active Substance: PERMETHRIN
     Dosage: 60 G, SINGLE
     Route: 061
     Dates: start: 20160219, end: 20160219
  4. PERMETHRIN. [Suspect]
     Active Substance: PERMETHRIN
     Indication: ACARODERMATITIS
     Dosage: 60 G, SINGLE
     Route: 061
     Dates: start: 20160129, end: 20160129
  5. PERMETHRIN. [Suspect]
     Active Substance: PERMETHRIN
     Dosage: 60 G, SINGLE
     Route: 061
     Dates: start: 20160205, end: 20160205

REACTIONS (3)
  - Drug effect incomplete [Unknown]
  - Inappropriate schedule of drug administration [Recovered/Resolved]
  - Wrong technique in product usage process [Recovered/Resolved]

NARRATIVE: CASE EVENT DATE: 20160129
